FAERS Safety Report 7074934-6 (Version None)
Quarter: 2010Q4

REPORT INFORMATION
  Report Type: 
  Country: None (occurrence: None)
  Receive Date: 20101029
  Receipt Date: 20101018
  Transmission Date: 20110411
  Serious: Yes (Death)
  Sender: FDA-Public Use
  Company Number: GB-GENENTECH-300668

PATIENT

DRUGS (1)
  1. LUCENTIS [Suspect]
     Dosage: 5 MG, UNK
     Route: 031
     Dates: start: 20090827

REACTIONS (1)
  - MYOCARDIAL INFARCTION [None]
